FAERS Safety Report 13540268 (Version 2)
Quarter: 2017Q3

REPORT INFORMATION
  Report Type: Spontaneous
  Country: BR (occurrence: BR)
  Receive Date: 20170512
  Receipt Date: 20170704
  Transmission Date: 20171127
  Serious: Yes (Other)
  Sender: FDA-Public Use
  Company Number: BR-ELI_LILLY_AND_COMPANY-BR201705000384

PATIENT
  Age: 47 Year
  Sex: Female

DRUGS (2)
  1. ERBITUX [Suspect]
     Active Substance: CETUXIMAB
     Indication: GASTROINTESTINAL CARCINOMA
     Dosage: 728 MG, UNKNOWN
     Route: 042
     Dates: start: 20170425, end: 20170425
  2. ERBITUX [Suspect]
     Active Substance: CETUXIMAB
     Dosage: 728 UNK, UNK
     Route: 042
     Dates: start: 20170425, end: 20170425

REACTIONS (1)
  - Anaphylactic reaction [Recovered/Resolved]

NARRATIVE: CASE EVENT DATE: 20170425
